FAERS Safety Report 14242066 (Version 1)
Quarter: 2017Q4

REPORT INFORMATION
  Report Type: Spontaneous
  Country: US (occurrence: US)
  Receive Date: 20171201
  Receipt Date: 20171201
  Transmission Date: 20180321
  Serious: Yes (Other)
  Sender: FDA-Public Use
  Company Number: US-TEVA-2017-US-828833

PATIENT
  Sex: Female
  Weight: 86.26 kg

DRUGS (4)
  1. METRONIDAZOLE VAGINAL GEL [Concomitant]
     Active Substance: METRONIDAZOLE
     Indication: BACTERIAL VAGINOSIS
     Dosage: INSERT ONE APPLICATOR VAGINALLY ONE TIME A DAY FOR 10 DAYS
     Route: 067
     Dates: start: 20171012, end: 20171021
  2. OMEPRAZOLE BY DEXCEL [Concomitant]
     Indication: GASTROOESOPHAGEAL REFLUX DISEASE
     Dosage: 20 MILLIGRAM DAILY;
     Route: 048
  3. ESTRADIOL VALERATE. [Suspect]
     Active Substance: ESTRADIOL VALERATE
     Indication: HYSTERECTOMY
     Dosage: .5 MILLIGRAM DAILY;
     Route: 048
  4. VITAMIN D [Concomitant]
     Active Substance: CHOLECALCIFEROL
     Indication: SUPPLEMENTATION THERAPY
     Dosage: 3 IN THE SUMMER AND 4 IN THE WINTER BY MOUTH
     Route: 048

REACTIONS (2)
  - Coeliac disease [Unknown]
  - Adverse event [Recovered/Resolved]
